FAERS Safety Report 17034913 (Version 1)
Quarter: 2019Q4

REPORT INFORMATION
  Report Type: Spontaneous
  Country: NZ (occurrence: NZ)
  Receive Date: 20191115
  Receipt Date: 20191115
  Transmission Date: 20200122
  Serious: Yes (Other)
  Sender: FDA-Public Use
  Company Number: NZ-GLAXOSMITHKLINE-NZ2019APC205913

PATIENT

DRUGS (2)
  1. LAMOTRIGINE. [Suspect]
     Active Substance: LAMOTRIGINE
     Indication: EPILEPSY
     Dosage: UNK
  2. LAMOTRIGINE. [Suspect]
     Active Substance: LAMOTRIGINE
     Indication: BIPOLAR DISORDER

REACTIONS (9)
  - Suicidal ideation [Unknown]
  - Suicide attempt [Unknown]
  - Headache [Unknown]
  - Seizure [Unknown]
  - Amnesia [Unknown]
  - Fatigue [Unknown]
  - Hot flush [Unknown]
  - Mood altered [Unknown]
  - Rash [Unknown]
